FAERS Safety Report 24849483 (Version 1)
Quarter: 2025Q1

REPORT INFORMATION
  Report Type: Spontaneous
  Country: US (occurrence: US)
  Receive Date: 20250116
  Receipt Date: 20250116
  Transmission Date: 20250409
  Serious: No
  Sender: BAYER HEALTHCARE LLC
  Company Number: US-BAYER-2025A006464

PATIENT
  Age: 87 Year
  Sex: Male

DRUGS (1)
  1. MIRALAX [Suspect]
     Active Substance: POLYETHYLENE GLYCOL 3350
     Indication: Gastrointestinal disorder
     Route: 048
     Dates: start: 20241221, end: 20250108

REACTIONS (2)
  - Product use issue [Unknown]
  - Therapeutic product effect incomplete [None]

NARRATIVE: CASE EVENT DATE: 20241221
